FAERS Safety Report 8992925 (Version 3)
Quarter: 2013Q2

REPORT INFORMATION
  Report Type: Spontaneous
  Country: US (occurrence: US)
  Receive Date: 20130102
  Receipt Date: 20130521
  Transmission Date: 20140414
  Serious: Yes (Other)
  Sender: FDA-Public Use
  Company Number: US-UCBSA-074135

PATIENT
  Age: 50 Year
  Sex: Female
  Weight: 77.11 kg

DRUGS (27)
  1. CIMZIA [Suspect]
     Indication: CROHN^S DISEASE
     Route: 058
     Dates: start: 20121221, end: 20121227
  2. AZATHIOPRINE [Concomitant]
  3. OMEPRAZOLE [Concomitant]
  4. DICYCLOMINE [Concomitant]
  5. ESTRADIOL [Concomitant]
  6. METHOCARBAMOL [Concomitant]
  7. POTASSIUM CL [Concomitant]
  8. LIPOFEN [Concomitant]
  9. CYANOCOBALAM [Concomitant]
     Dosage: DOSE: 1000 MCG INJ 1 ML VIAL, INJECT 1 ML IN THE MUSCLE MONTHLY
  10. CLONIDINE [Concomitant]
     Dosage: DOSE: 0.1 MG TAB UDL, 1 TABLET TWICE DAILY
  11. RANITIDINE [Concomitant]
     Dosage: DOSE: 150 MG AMN, 1 TABLET TWICE DAILY
  12. CARVEDILOL [Concomitant]
     Dosage: DOSE: 25 MG TEV, 1 TABLET TWICE DAILY
  13. CITALOPRAM [Concomitant]
  14. AMITRIPTYLINE [Concomitant]
  15. LYRICA [Concomitant]
  16. LUNESTA [Concomitant]
  17. ROPINIROLE [Concomitant]
  18. VITAMIN D [Concomitant]
     Dosage: DOSE: VIT D 50,000 IU D2 (ERGO) CAPS (RX) 1 CAPSULE EVERY WEEK
  19. CHOLESTYRAMINE [Concomitant]
     Dosage: DOSE; 4 GM PACKETS 60^S 1 PACKET TWICW DAILY
  20. TRAMADOL [Concomitant]
     Dosage: DOSE: 50 MG 1-2 TABLETS EVERY 6 HOURS AS NEEDED
  21. CALCIUM W/VITAMIN D3 [Concomitant]
     Dosage: DOSE: CALCIUM 600 MG + 500 IU VITAMIN D3 1 TABLET TWICE DAILY
  22. PRENATAL VITAMINS [Concomitant]
     Dosage: DOSE: 1 PILL DAILY
  23. MAGNESIUM W/ZINC [Concomitant]
     Dosage: DOSE: MAGNESIUM W/ZINC 400 MG + 15 MG 1 TABLET DAILY
  24. ASPIRIN [Concomitant]
  25. CHLORPHENIRAMINE MALEATE + PHENYLEPHRINE HCI [Concomitant]
     Dosage: DOSE: 1 EVERY 4-6 HOURS
  26. HUMIRA [Concomitant]
     Dosage: UNKNOWN DOSE
     Dates: start: 201209, end: 201211
  27. ZINC [Concomitant]
     Dosage: DOSE: MAGNESIUM W/ZINC 400 MG + 15 MG 1 TABLET DAILY

REACTIONS (1)
  - Urticaria [Recovered/Resolved]
